FAERS Safety Report 9250385 (Version 1)
Quarter: 2013Q2

REPORT INFORMATION
  Report Type: Spontaneous
  Country: IE (occurrence: IE)
  Receive Date: 20130424
  Receipt Date: 20130424
  Transmission Date: 20140414
  Serious: Yes (Other)
  Sender: FDA-Public Use
  Company Number: IE-009507513-1304GBR011912

PATIENT
  Sex: Female

DRUGS (1)
  1. FOSAVANCE [Suspect]

REACTIONS (1)
  - Nasopharyngeal cancer [Unknown]
